FAERS Safety Report 9498658 (Version 1)
Quarter: 2013Q3

REPORT INFORMATION
  Report Type: Spontaneous
  Country: GB (occurrence: GB)
  Receive Date: 20130904
  Receipt Date: 20130904
  Transmission Date: 20140515
  Serious: Yes (Other)
  Sender: FDA-Public Use
  Company Number: GB-ACTAVIS-2013-15533

PATIENT
  Sex: 0

DRUGS (2)
  1. DICLOFENAC (UNKNOWN) [Suspect]
     Indication: PROCEDURAL PAIN
     Dosage: 50 MG, UNKNOWN
     Route: 048
     Dates: start: 20130318, end: 20130321
  2. LAMICTAL [Suspect]
     Indication: PRODUCT USED FOR UNKNOWN INDICATION
     Route: 065

REACTIONS (3)
  - Grand mal convulsion [Unknown]
  - Initial insomnia [Unknown]
  - Drug interaction [Unknown]
